FAERS Safety Report 17622615 (Version 3)
Quarter: 2020Q2

REPORT INFORMATION
  Report Type: Spontaneous
  Country: US (occurrence: US)
  Receive Date: 20200403
  Receipt Date: 20200505
  Transmission Date: 20200713
  Serious: Yes (Other)
  Sender: FDA-Public Use
  Company Number: US-AUROBINDO-AUR-APL-2020-015842

PATIENT
  Age: 3 Year
  Sex: Female

DRUGS (1)
  1. DIPHENHYDRAMINE ORAL SOLUTION 50MG/20ML [Suspect]
     Active Substance: DIPHENHYDRAMINE
     Indication: HYPERSENSITIVITY
     Dosage: UNK
     Route: 065

REACTIONS (5)
  - Injury [Unknown]
  - Accidental overdose [Unknown]
  - Accidental poisoning [Unknown]
  - Accidental exposure to product [Unknown]
  - Product container seal issue [Unknown]

NARRATIVE: CASE EVENT DATE: 20171023
